FAERS Safety Report 7283405-3 (Version None)
Quarter: 2011Q1

REPORT INFORMATION
  Report Type: 
  Country: None (occurrence: None)
  Receive Date: 20110209
  Receipt Date: 20100928
  Transmission Date: 20110831
  Serious: No
  Sender: FDA-Public Use
  Company Number: A0883782A

PATIENT
  Age: 39 Year
  Sex: Male

DRUGS (2)
  1. PAXIL [Suspect]
     Dosage: 15MG PER DAY
     Route: 048
     Dates: start: 20100917
  2. XANAX [Concomitant]

REACTIONS (5)
  - MEDICATION ERROR [None]
  - ANXIETY [None]
  - HYPERHIDROSIS [None]
  - WEIGHT DECREASED [None]
  - DECREASED APPETITE [None]
